FAERS Safety Report 19183905 (Version 1)
Quarter: 2021Q2

REPORT INFORMATION
  Report Type: Spontaneous
  Country: US (occurrence: US)
  Receive Date: 20210426
  Receipt Date: 20210426
  Transmission Date: 20210717
  Serious: Yes (Hospitalization)
  Sender: FDA-Public Use
  Company Number: None

PATIENT
  Age: 66 Year
  Sex: Female
  Weight: 66 kg

DRUGS (1)
  1. HIZENTRA [Suspect]
     Active Substance: HUMAN IMMUNOGLOBULIN G
     Indication: AUTOIMMUNE NEUROPATHY
     Dosage: ?          QUANTITY:2 INJECTION(S);OTHER FREQUENCY:WEEKLY INFUSION;?
     Route: 058
     Dates: start: 20210317, end: 20210317

REACTIONS (9)
  - Injection site pruritus [None]
  - Apnoea test abnormal [None]
  - Hyperhidrosis [None]
  - Presyncope [None]
  - Fatigue [None]
  - Dyspnoea [None]
  - Induration [None]
  - Muscular weakness [None]
  - Injection site erythema [None]

NARRATIVE: CASE EVENT DATE: 20210317
